FAERS Safety Report 15148506 (Version 2)
Quarter: 2018Q3

REPORT INFORMATION
  Report Type: Spontaneous
  Country: US (occurrence: US)
  Receive Date: 20180716
  Receipt Date: 20180810
  Transmission Date: 20181010
  Serious: No
  Sender: FDA-Public Use
  Company Number: US-PFIZER INC-2018284114

PATIENT
  Age: 47 Year
  Sex: Male

DRUGS (1)
  1. DEPO?MEDROL [Suspect]
     Active Substance: METHYLPREDNISOLONE ACETATE
     Dosage: 2 MG, DAILY
     Route: 030

REACTIONS (5)
  - Inflammation [Unknown]
  - Joint swelling [Unknown]
  - Drug ineffective [Unknown]
  - Weight increased [Unknown]
  - Labile blood pressure [Unknown]
